FAERS Safety Report 10330046 (Version 2)
Quarter: 2014Q3

REPORT INFORMATION
  Report Type: Spontaneous
  Country: US (occurrence: US)
  Receive Date: 20140721
  Receipt Date: 20140721
  Transmission Date: 20150326
  Serious: Yes (Disabling)
  Sender: FDA-Public Use
  Company Number: US-FRI-1000062460

PATIENT
  Age: 38 Year
  Sex: Male
  Weight: 90.7 kg

DRUGS (1)
  1. SAPHRIS [Suspect]
     Active Substance: ASENAPINE MALEATE
     Dosage: 10 MG, QHS
     Dates: start: 20101022, end: 20130122

REACTIONS (1)
  - Personality change [Not Recovered/Not Resolved]

NARRATIVE: CASE EVENT DATE: 201106
